FAERS Safety Report 8816530 (Version 1)
Quarter: 2012Q4

REPORT INFORMATION
  Report Type: Spontaneous
  Country: US (occurrence: None)
  Receive Date: 20120927
  Receipt Date: 20120927
  Transmission Date: 20130627
  Serious: Yes (Hospitalization)
  Sender: FDA-Public Use
  Company Number: IMP_05997_2012

PATIENT
  Age: 19 Year
  Sex: Female

DRUGS (1)
  1. MINOCYCLINE [Suspect]
     Indication: ACNE
     Dosage: DF

REACTIONS (2)
  - Autoimmune hepatitis [None]
  - Drug-induced liver injury [None]
